FAERS Safety Report 10758274 (Version 2)
Quarter: 2015Q1

REPORT INFORMATION
  Report Type: Spontaneous
  Country: JP (occurrence: JP)
  Receive Date: 20150203
  Receipt Date: 20150209
  Transmission Date: 20150721
  Serious: Yes (Other)
  Sender: FDA-Public Use
  Company Number: JP-PFIZER INC-2015040324

PATIENT
  Age: 37 Year
  Sex: Male

DRUGS (1)
  1. MEDEPOLIN [Suspect]
     Active Substance: ALPRAZOLAM
     Dosage: 0.4 MG, UNK
     Route: 048
     Dates: start: 20110602

REACTIONS (1)
  - Cerebral atrophy [Unknown]

NARRATIVE: CASE EVENT DATE: 20141226
